FAERS Safety Report 6814134-5 (Version None)
Quarter: 2010Q3

REPORT INFORMATION
  Report Type: 
  Country: None (occurrence: None)
  Receive Date: 20100702
  Receipt Date: 20100323
  Transmission Date: 20110219
  Serious: No
  Sender: FDA-Public Use
  Company Number: A0848900A

PATIENT
  Sex: Female

DRUGS (11)
  1. ADVAIR DISKUS 100/50 [Suspect]
     Indication: ASTHMA
     Dosage: 2PUFF TWICE PER DAY
     Route: 055
     Dates: start: 20100101
  2. ADVAIR DISKUS 100/50 [Suspect]
     Dosage: 1PUFF TWICE PER DAY
     Route: 055
     Dates: start: 20070101
  3. XOPENEX [Concomitant]
  4. ZOMIG [Concomitant]
  5. AMBIEN [Concomitant]
  6. TEMAZEPAM [Concomitant]
  7. ALPRAZOLAM [Concomitant]
  8. UNKNOWN MEDICATION [Concomitant]
  9. PROMETRIUM [Concomitant]
  10. BECONASE [Concomitant]
  11. ASTELIN [Concomitant]

REACTIONS (4)
  - APHONIA [None]
  - CRYING [None]
  - DEPRESSION [None]
  - TREMOR [None]
